FAERS Safety Report 20827385 (Version 3)
Quarter: 2022Q3

REPORT INFORMATION
  Report Type: Spontaneous
  Country: IL (occurrence: IL)
  Receive Date: 20220513
  Receipt Date: 20220722
  Transmission Date: 20221027
  Serious: Yes (Other)
  Sender: FDA-Public Use
  Company Number: IL-ABBVIE-22K-082-4393426-00

PATIENT
  Sex: Male

DRUGS (1)
  1. RINVOQ [Suspect]
     Active Substance: UPADACITINIB
     Indication: Ankylosing spondylitis
     Route: 048
     Dates: start: 20220204, end: 20220705

REACTIONS (7)
  - Lymphoma [Unknown]
  - Speech disorder [Not Recovered/Not Resolved]
  - White blood cell count decreased [Unknown]
  - Arthritis [Not Recovered/Not Resolved]
  - Immunodeficiency [Recovering/Resolving]
  - Mobility decreased [Not Recovered/Not Resolved]
  - Pyrexia [Recovered/Resolved]

NARRATIVE: CASE EVENT DATE: 20220101
